FAERS Safety Report 8492062 (Version 2)
Quarter: 2012Q4

REPORT INFORMATION
  Report Type: 
  Country: US (occurrence: US)
  Receive Date: 20120403
  Receipt Date: 20120912
  Transmission Date: 20130627
  Serious: Yes (Hospitalization)
  Sender: FDA-Public Use
  Company Number: US-BAYER-2012-029556

PATIENT
  Age: 29 Year
  Sex: Female
  Weight: 76.19 kg

DRUGS (7)
  1. YAZ [Suspect]
     Dosage: UNK
     Dates: start: 200601, end: 201104
  2. OCELLA [Suspect]
     Dosage: UNK
     Dates: start: 200909, end: 201002
  3. YASMIN [Suspect]
     Dosage: UNK
     Dates: start: 2011, end: 2011
  4. IBUPROFEN [Concomitant]
     Indication: PAIN
     Dosage: 400 to 800 mg, one tablet as needed
     Route: 048
     Dates: start: 20030714, end: 20100120
  5. PERCOCET [Concomitant]
     Indication: ABDOMINAL PAIN
     Dosage: 325 mg, UNK
     Dates: start: 20100208
  6. PERCOCET [Concomitant]
     Indication: ABDOMINAL PAIN
     Dosage: 7.5-325mg
     Route: 048
     Dates: start: 20100208
  7. FAMOTIDINE [Concomitant]
     Indication: ABDOMINAL PAIN
     Dosage: 20 mg, UNK
     Route: 048
     Dates: start: 20100208

REACTIONS (3)
  - Cholecystitis [None]
  - Injury [None]
  - Pain [None]
